FAERS Safety Report 6527567-1 (Version None)
Quarter: 2010Q1

REPORT INFORMATION
  Report Type: 
  Country: None (occurrence: None)
  Receive Date: 20100105
  Receipt Date: 20091222
  Transmission Date: 20100710
  Serious: No
  Sender: FDA-Public Use
  Company Number: US-B.I. PHARMACEUTICALS,INC./RIDGEFIELD-2009-BP-14801BP

PATIENT
  Age: 29 Year
  Sex: Male

DRUGS (2)
  1. VIRAMUNE [Suspect]
     Indication: HIV INFECTION
     Dosage: 400 MG
     Route: 048
     Dates: end: 20090901
  2. COMBIVIR [Suspect]
     Indication: HIV INFECTION
     Dates: end: 20090901

REACTIONS (1)
  - T-LYMPHOCYTE COUNT DECREASED [None]
